FAERS Safety Report 18442583 (Version 2)
Quarter: 2020Q4

REPORT INFORMATION
  Report Type: Spontaneous
  Country: US (occurrence: US)
  Receive Date: 20201029
  Receipt Date: 20201111
  Transmission Date: 20210114
  Serious: Yes (Life-Threatening, Hospitalization, Other)
  Sender: FDA-Public Use
  Company Number: US-SA-2020SA303408

PATIENT

DRUGS (4)
  1. DOXYLAMINE SUCCINATE. [Suspect]
     Active Substance: DOXYLAMINE SUCCINATE
     Dosage: UNKNOWN QUANTITIES
  2. VICKS NYQUIL [Suspect]
     Active Substance: ACETAMINOPHEN\DEXTROMETHORPHAN HYDROBROMIDE\DOXYLAMINE SUCCINATE
     Dosage: UNKNOWN QUANTITIES
  3. DIPHENHYDRAMINE HYDROCHLORIDE. [Suspect]
     Active Substance: DIPHENHYDRAMINE HYDROCHLORIDE
     Dosage: UNKNOWN QUANTITIES
  4. ATIVAN [Concomitant]
     Active Substance: LORAZEPAM
     Dosage: UNK, QD

REACTIONS (15)
  - Mental status changes [Recovered/Resolved]
  - Irritability [Recovered/Resolved]
  - Rhabdomyolysis [Recovered/Resolved]
  - Lactic acidosis [Recovered/Resolved]
  - Generalised tonic-clonic seizure [Recovered/Resolved]
  - Bundle branch block left [Recovered/Resolved]
  - Tachyarrhythmia [Recovered/Resolved]
  - Myoclonus [Not Recovered/Not Resolved]
  - Confusional state [Recovered/Resolved]
  - Nystagmus [Recovered/Resolved]
  - Tachycardia [Recovered/Resolved]
  - QRS axis abnormal [Recovered/Resolved]
  - Exaggerated startle response [Recovered/Resolved]
  - Intentional overdose [Recovered/Resolved]
  - Condition aggravated [Recovered/Resolved]
